FAERS Safety Report 7210420-8 (Version None)
Quarter: 2011Q1

REPORT INFORMATION
  Report Type: 
  Country: None (occurrence: None)
  Receive Date: 20110105
  Receipt Date: 20100702
  Transmission Date: 20110831
  Serious: Yes (Hospitalization, Other)
  Sender: FDA-Public Use
  Company Number: US-BAYER-200938258NA

PATIENT
  Sex: Female
  Weight: 81.818 kg

DRUGS (11)
  1. LORTAB [Concomitant]
     Dosage: 5 MG/500 MG
  2. CELEXA [Concomitant]
     Dates: start: 20020101
  3. YAZ [Suspect]
     Indication: ORAL CONTRACEPTION
     Route: 048
     Dates: start: 20080601, end: 20081001
  4. COUMADIN [Concomitant]
     Indication: DEEP VEIN THROMBOSIS
  5. YAZ [Suspect]
     Indication: PREMENSTRUAL SYNDROME
  6. OMEPRAZOLE [Concomitant]
  7. CYCLOBENZAPRINE [Concomitant]
  8. ANSAID [Concomitant]
  9. COUMADIN [Concomitant]
     Indication: PULMONARY EMBOLISM
  10. IBUPROFEN [Concomitant]
  11. ORAL CONTRACEPTIVE NOS [Concomitant]
     Indication: MENSTRUATION IRREGULAR

REACTIONS (9)
  - PULMONARY EMBOLISM [None]
  - DEEP VEIN THROMBOSIS [None]
  - DYSPNOEA EXERTIONAL [None]
  - HOMANS' SIGN [None]
  - OEDEMA PERIPHERAL [None]
  - PAIN IN EXTREMITY [None]
  - PAIN [None]
  - MUSCLE SPASMS [None]
  - SWELLING [None]
